FAERS Safety Report 17292987 (Version 1)
Quarter: 2020Q1

REPORT INFORMATION
  Report Type: Spontaneous
  Country: US (occurrence: US)
  Receive Date: 20200102
  Receipt Date: 20200102
  Transmission Date: 20200409
  Serious: Yes (Hospitalization)
  Sender: FDA-Public Use
  Company Number: None

PATIENT
  Age: 58 Year
  Sex: Female

DRUGS (14)
  1. HUMIRA [Suspect]
     Active Substance: ADALIMUMAB
     Indication: RHEUMATOID ARTHRITIS
     Dosage: ?          OTHER FREQUENCY:Q2WKS ;?
     Route: 058
  2. HYDROCHLOROTHIAZIDE. [Concomitant]
     Active Substance: HYDROCHLOROTHIAZIDE
  3. METFORMIN [Concomitant]
     Active Substance: METFORMIN HYDROCHLORIDE
  4. CARVEDILOL. [Concomitant]
     Active Substance: CARVEDILOL
  5. ESTRADIOL. [Concomitant]
     Active Substance: ESTRADIOL
  6. LISINOPRIL. [Concomitant]
     Active Substance: LISINOPRIL
  7. ONDANSETRON [Concomitant]
     Active Substance: ONDANSETRON
  8. FUROSEMIDE. [Concomitant]
     Active Substance: FUROSEMIDE
  9. PREGABALIN. [Concomitant]
     Active Substance: PREGABALIN
  10. NIFEDIPINE. [Concomitant]
     Active Substance: NIFEDIPINE
  11. ZOLPIDEM [Concomitant]
     Active Substance: ZOLPIDEM TARTRATE
  12. LYRICA [Concomitant]
     Active Substance: PREGABALIN
  13. CITALOPRAM [Concomitant]
     Active Substance: CITALOPRAM HYDROBROMIDE
  14. AZATHIOPRINE. [Concomitant]
     Active Substance: AZATHIOPRINE

REACTIONS (1)
  - Intestinal obstruction [None]

NARRATIVE: CASE EVENT DATE: 20191218
